FAERS Safety Report 17560713 (Version 1)
Quarter: 2020Q1

REPORT INFORMATION
  Report Type: Spontaneous
  Country: DE (occurrence: DE)
  Receive Date: 20200319
  Receipt Date: 20200319
  Transmission Date: 20200409
  Serious: Yes (Other)
  Sender: FDA-Public Use
  Company Number: DE-ASTRAZENECA-2020SE38130

PATIENT
  Age: 71 Year
  Sex: Female

DRUGS (3)
  1. AFATINIB [Concomitant]
     Active Substance: AFATINIB
     Dates: start: 2016
  2. OSIMERTINIB. [Suspect]
     Active Substance: OSIMERTINIB
     Route: 048
  3. PREDNISOLONE. [Concomitant]
     Active Substance: PREDNISOLONE

REACTIONS (2)
  - Malignant neoplasm progression [Unknown]
  - Diarrhoea [Unknown]

NARRATIVE: CASE EVENT DATE: 201806
